FAERS Safety Report 20211188 (Version 2)
Quarter: 2022Q1

REPORT INFORMATION
  Report Type: Spontaneous
  Country: PL (occurrence: PL)
  Receive Date: 20211221
  Receipt Date: 20220106
  Transmission Date: 20220423
  Serious: Yes (Hospitalization, Other)
  Sender: FDA-Public Use
  Company Number: PL-MYLANLABS-2021M1091528

PATIENT
  Age: 68 Year
  Sex: Female

DRUGS (4)
  1. VENLAFAXINE [Suspect]
     Active Substance: VENLAFAXINE HYDROCHLORIDE
     Indication: Bipolar II disorder
     Dosage: 150 MILLIGRAM, QD
     Dates: start: 2002
  2. LITHIUM CARBONATE [Suspect]
     Active Substance: LITHIUM CARBONATE
     Indication: Bipolar II disorder
     Dosage: 1500 MILLIGRAM, QD
     Dates: start: 2002
  3. LITHIUM CARBONATE [Suspect]
     Active Substance: LITHIUM CARBONATE
     Indication: Affective disorder
     Dosage: 1000 MILLIGRAM, QD
     Dates: start: 202101
  4. LITHIUM CARBONATE [Suspect]
     Active Substance: LITHIUM CARBONATE
     Dosage: 375 MILLIGRAM
     Dates: start: 2021

REACTIONS (12)
  - Respiratory failure [Unknown]
  - Drug ineffective [Unknown]
  - Pneumonia [Unknown]
  - Vomiting [Unknown]
  - Toxicity to various agents [Unknown]
  - Depression [Unknown]
  - Stupor [Unknown]
  - Tremor [Unknown]
  - Asthenia [Unknown]
  - Gait disturbance [Not Recovered/Not Resolved]
  - COVID-19 [Unknown]
  - Disease recurrence [Unknown]

NARRATIVE: CASE EVENT DATE: 20210101
